FAERS Safety Report 6408945-8 (Version None)
Quarter: 2009Q4

REPORT INFORMATION
  Report Type: 
  Country: None (occurrence: None)
  Receive Date: 20091021
  Receipt Date: 20091018
  Transmission Date: 20100525
  Serious: Yes (Death, Hospitalization)
  Sender: FDA-Public Use
  Company Number: CN-BRISTOL-MYERS SQUIBB COMPANY-14821599

PATIENT
  Age: 52 Year
  Sex: Male

DRUGS (4)
  1. PACLITAXEL [Suspect]
     Indication: GASTRIC CANCER
     Dosage: 1. 21JUL09-07AUG09 2. 21AUG09-04SEP09 3. 18SEP09-02OCT09
     Dates: start: 20090721, end: 20091002
  2. LAPATINIB [Suspect]
     Indication: GASTRIC CANCER
     Dates: start: 20090721, end: 20091014
  3. CEFOPERAZONE SODIUM + SULBACTAM SODIUM [Concomitant]
     Route: 042
     Dates: start: 20091015
  4. BICYCLOL [Concomitant]
     Route: 048
     Dates: start: 20091015, end: 20091018

REACTIONS (3)
  - ACUTE MYOCARDIAL INFARCTION [None]
  - ALANINE AMINOTRANSFERASE INCREASED [None]
  - BLOOD BILIRUBIN INCREASED [None]
